FAERS Safety Report 7570287-5 (Version None)
Quarter: 2011Q2

REPORT INFORMATION
  Report Type: 
  Country: None (occurrence: None)
  Receive Date: 20110622
  Receipt Date: 20110622
  Transmission Date: 20111010
  Serious: No
  Sender: FDA-Public Use
  Company Number: None

PATIENT
  Sex: Female

DRUGS (3)
  1. LOTEMAX [Suspect]
     Indication: IRITIS
     Dosage: T GT4 QD OU
     Route: 048
     Dates: start: 20020101
  2. LOTEMAX [Suspect]
     Indication: IRITIS
     Dosage: T GT4 QD OU
     Route: 048
     Dates: start: 20070701
  3. LOTEMAX [Suspect]
     Indication: IRITIS
     Dosage: T GT4 QD OU
     Route: 048
     Dates: start: 20070801

REACTIONS (2)
  - CONDITION AGGRAVATED [None]
  - IRITIS [None]
